FAERS Safety Report 6435630-9 (Version None)
Quarter: 2009Q4

REPORT INFORMATION
  Report Type: 
  Country: None (occurrence: None)
  Receive Date: 20091110
  Receipt Date: 20080821
  Transmission Date: 20100525
  Serious: No
  Sender: FDA-Public Use
  Company Number: AECAN200800190

PATIENT
  Age: 51 Year
  Sex: Female

DRUGS (1)
  1. GAMUNEX [Suspect]
     Indication: DRUG USE FOR UNKNOWN INDICATION
     Dosage: 20 GM; TOTAL; IV
     Route: 042
     Dates: start: 20080821, end: 20080821

REACTIONS (2)
  - EXTRAVASATION [None]
  - INFUSION RELATED REACTION [None]
